FAERS Safety Report 9950235 (Version 2)
Quarter: 2014Q1

REPORT INFORMATION
  Report Type: Report from Study
  Country: US (occurrence: US)
  Receive Date: 20140304
  Receipt Date: 20140304
  Transmission Date: 20141002
  Serious: No
  Sender: FDA-Public Use
  Company Number: US-ABBVIE-10P-163-0652928-00

PATIENT
  Age: 57 Year
  Sex: Male
  Weight: 74.91 kg

DRUGS (7)
  1. HUMIRA [Suspect]
     Indication: PSORIASIS
     Route: 050
     Dates: start: 201005, end: 20100505
  2. HUMIRA [Suspect]
     Dates: start: 201010, end: 20130131
  3. HUMIRA [Suspect]
     Dates: start: 20130301
  4. PERCOCET [Concomitant]
     Indication: BACK PAIN
     Dosage: UP TO 4 DAILY
  5. ALPRAZOLAM [Concomitant]
     Indication: MUSCLE SPASMS
  6. TIZANIDINE [Concomitant]
     Indication: MUSCLE SPASMS
  7. NEURONTIN [Concomitant]
     Indication: PAIN IN EXTREMITY

REACTIONS (4)
  - Psoriasis [Recovered/Resolved]
  - Influenza [Recovered/Resolved]
  - Pain [Recovered/Resolved]
  - Chills [Recovered/Resolved]
